FAERS Safety Report 4344952-7 (Version None)
Quarter: 2004Q2

REPORT INFORMATION
  Report Type: 
  Country: None (occurrence: None)
  Receive Date: 20040420
  Receipt Date: 20040407
  Transmission Date: 20050107
  Serious: Yes (Hospitalization)
  Sender: FDA-Public Use
  Company Number: 2004SE01956

PATIENT
  Age: 66 Year
  Sex: Male

DRUGS (10)
  1. BLOPRESS [Suspect]
     Indication: HYPERTENSION
     Dosage: 4 MG QD PO
     Route: 048
     Dates: start: 20040310, end: 20040311
  2. BLOPRESS [Suspect]
     Indication: HYPERTENSION
     Dosage: 4 MG BID PO
     Route: 048
     Dates: start: 20040312, end: 20040318
  3. BLOPRESS [Suspect]
     Indication: HYPERTENSION
     Dosage: 4 MG QD PO
     Route: 048
     Dates: start: 20040319, end: 20040320
  4. HARFDIGOXIN [Concomitant]
  5. WARFARIN SODIUM [Concomitant]
  6. ASPIRIN [Concomitant]
  7. PRAVASTATIN SODIUM [Concomitant]
  8. PURENNID [Concomitant]
  9. AMLODIPINE BESYLATE [Concomitant]
  10. GLYCERYL TRINITRATE [Concomitant]

REACTIONS (8)
  - BLOOD PRESSURE DECREASED [None]
  - CHEST PAIN [None]
  - COLD SWEAT [None]
  - DEPRESSED LEVEL OF CONSCIOUSNESS [None]
  - HEART RATE DECREASED [None]
  - HYPERHIDROSIS [None]
  - HYPOGLYCAEMIA [None]
  - MALAISE [None]
